FAERS Safety Report 6483631-7 (Version None)
Quarter: 2009Q4

REPORT INFORMATION
  Report Type: 
  Country: None (occurrence: None)
  Receive Date: 20091209
  Receipt Date: 20091203
  Transmission Date: 20100525
  Serious: Yes (Death, Hospitalization)
  Sender: FDA-Public Use
  Company Number: PHHY2009GB43701

PATIENT
  Sex: Male

DRUGS (9)
  1. CLOZARIL [Suspect]
     Indication: SCHIZOPHRENIA
     Dosage: 400 MG
     Dates: start: 19990716, end: 20041117
  2. CLOZARIL [Suspect]
     Dosage: UNK
     Dates: start: 20090622
  3. CLOZARIL [Suspect]
     Dosage: 300 MG DAILY
     Dates: start: 20090829
  4. CLOZAPINE (DENZAPINE) [Suspect]
     Indication: SCHIZOPHRENIA
  5. ZOPICLONE [Concomitant]
     Indication: INSOMNIA
     Dosage: 7.5 MG, QHS
     Route: 048
  6. DOMPERIDONE [Concomitant]
     Indication: GASTRIC ULCER
     Dosage: 30MG DAILY
     Route: 048
  7. OMEPRAZOLE [Concomitant]
     Dosage: 20MG DAILY
     Route: 048
  8. DIAZEPAM [Concomitant]
     Indication: ANXIETY
     Dosage: 2MG X 2 PRN
     Route: 048
  9. FOLIC ACID [Concomitant]
     Dosage: 5MG DAILY
     Route: 048

REACTIONS (2)
  - PNEUMONIA [None]
  - TUBERCULOSIS [None]
